FAERS Safety Report 7251602-9 (Version None)
Quarter: 2011Q1

REPORT INFORMATION
  Report Type: 
  Country: None (occurrence: None)
  Receive Date: 20110128
  Receipt Date: 20110125
  Transmission Date: 20110831
  Serious: Yes (Other)
  Sender: FDA-Public Use
  Company Number: US-PFIZER INC-2011017901

PATIENT
  Sex: Female
  Weight: 54.422 kg

DRUGS (3)
  1. AMLODIPINE BESILATE [Concomitant]
     Indication: HYPERTENSION
     Dosage: 5 MG, UNK
  2. XALATAN [Suspect]
     Indication: GLAUCOMA
     Dosage: UNK
     Route: 047
     Dates: start: 20100101
  3. MULTI-VITAMINS [Concomitant]
     Dosage: UNK

REACTIONS (2)
  - LACRIMATION INCREASED [None]
  - BLOOD SODIUM INCREASED [None]
